FAERS Safety Report 7888858-5 (Version None)
Quarter: 2011Q4

REPORT INFORMATION
  Report Type: 
  Country: None (occurrence: None)
  Receive Date: 20111103
  Receipt Date: 20111028
  Transmission Date: 20120403
  Serious: Yes (Other)
  Sender: FDA-Public Use
  Company Number: JP-JNJFOC-20111100755

PATIENT
  Age: 74 Year
  Sex: Male

DRUGS (3)
  1. TRAMADOL HYDROCHLORIDE/ACETAMINOPHEN [Suspect]
     Indication: BACK PAIN
     Dosage: 2 DOSES 1 PER 1 DAY
     Route: 048
     Dates: start: 20110926
  2. TRAMADOL HYDROCHLORIDE/ACETAMINOPHEN [Suspect]
     Dosage: 1 DOSES 1 PER 1 DAY
     Route: 048
     Dates: start: 20111024
  3. DEPAS [Suspect]
     Indication: PRODUCT USED FOR UNKNOWN INDICATION
     Dosage: 0.5 MG 1 PER 1 DAY
     Route: 048

REACTIONS (3)
  - FALL [None]
  - COMPRESSION FRACTURE [None]
  - SOMNOLENCE [None]
